FAERS Safety Report 12333870 (Version 1)
Quarter: 2016Q2

REPORT INFORMATION
  Report Type: Spontaneous
  Country: US (occurrence: US)
  Receive Date: 20160504
  Receipt Date: 20160504
  Transmission Date: 20160815
  Serious: Yes (Other)
  Sender: FDA-Public Use
  Company Number: US-SMITH AND NEPHEW, INC-2016SMT00363

PATIENT
  Sex: Male

DRUGS (1)
  1. REGRANEX [Suspect]
     Active Substance: BECAPLERMIN
     Indication: WOUND
     Route: 061

REACTIONS (5)
  - Feeling abnormal [Unknown]
  - Off label use [Unknown]
  - Osteomyelitis [Unknown]
  - Malaise [Unknown]
  - Toe amputation [Recovered/Resolved with Sequelae]
